FAERS Safety Report 8428509-4 (Version None)
Quarter: 2012Q2

REPORT INFORMATION
  Report Type: 
  Country: None (occurrence: None)
  Receive Date: 20120612
  Receipt Date: 20120606
  Transmission Date: 20120825
  Serious: No
  Sender: FDA-Public Use
  Company Number: US-PFIZER INC-2012136486

PATIENT
  Sex: Female
  Weight: 51.701 kg

DRUGS (2)
  1. LIPITOR [Suspect]
     Indication: BLOOD CHOLESTEROL INCREASED
     Dosage: 10 MG, 1X/DAY
     Route: 048
     Dates: end: 20111101
  2. MICARDIS [Concomitant]
     Indication: HYPERTENSION
     Dosage: UNK

REACTIONS (3)
  - LACTOSE INTOLERANCE [None]
  - GASTRIC DISORDER [None]
  - FOOD ALLERGY [None]
